FAERS Safety Report 12340415 (Version 1)
Quarter: 2016Q2

REPORT INFORMATION
  Report Type: Other
  Country: GB (occurrence: GB)
  Receive Date: 20160506
  Receipt Date: 20160506
  Transmission Date: 20160815
  Serious: Yes (Other)
  Sender: FDA-Public Use
  Company Number: GB-GLENMARK PHARMACEUTICALS INC, USA.-2016GMK022717

PATIENT

DRUGS (2)
  1. LOESTRIN NOS [Concomitant]
     Active Substance: ETHINYL ESTRADIOL\NORETHINDRONE ACETATE
     Indication: PRODUCT USED FOR UNKNOWN INDICATION
     Dosage: UNK
  2. TOPIRAMATE. [Suspect]
     Active Substance: TOPIRAMATE
     Indication: CLUSTER HEADACHE
     Dosage: 25 MG, UNK
     Route: 048
     Dates: start: 20160412, end: 20160415

REACTIONS (5)
  - Off label use [Unknown]
  - Arthralgia [Recovering/Resolving]
  - Depression [Not Recovered/Not Resolved]
  - Loss of consciousness [Recovered/Resolved]
  - Paraesthesia [Recovering/Resolving]

NARRATIVE: CASE EVENT DATE: 20160412
